FAERS Safety Report 24918322 (Version 2)
Quarter: 2025Q1

REPORT INFORMATION
  Report Type: Spontaneous
  Country: US (occurrence: US)
  Receive Date: 20250203
  Receipt Date: 20250211
  Transmission Date: 20250409
  Serious: Yes (Hospitalization, Other)
  Sender: IOVANCE BIOTHERAPEUTICS MANUFACTURING LLC
  Company Number: US-IOVANCE BIOTHERAPEUTICS INC.-IOV2025000009

PATIENT

DRUGS (4)
  1. PROLEUKIN [Suspect]
     Active Substance: ALDESLEUKIN
     Indication: Metastatic malignant melanoma
     Route: 042
  2. AMTAGVI [Suspect]
     Active Substance: LIFILEUCEL
     Indication: Metastatic malignant melanoma
     Dates: start: 20241218
  3. CYCLOPHOSPHAMIDE [Suspect]
     Active Substance: CYCLOPHOSPHAMIDE
     Indication: Malignant melanoma
     Route: 065
     Dates: start: 2024
  4. FLUDARABINE [Suspect]
     Active Substance: FLUDARABINE PHOSPHATE
     Indication: Malignant melanoma
     Route: 065
     Dates: start: 2024

REACTIONS (7)
  - Neoplasm progression [Unknown]
  - Tumour invasion [Unknown]
  - Tumour exudation [Unknown]
  - Malignant melanoma [Unknown]
  - Chills [Unknown]
  - Drug ineffective [Unknown]
  - Skin mass [Unknown]

NARRATIVE: CASE EVENT DATE: 20240101
